FAERS Safety Report 17434573 (Version 1)
Quarter: 2020Q1

REPORT INFORMATION
  Report Type: Spontaneous
  Country: AU (occurrence: AU)
  Receive Date: 20200219
  Receipt Date: 20200219
  Transmission Date: 20200409
  Serious: Yes (Other)
  Sender: FDA-Public Use
  Company Number: AU-PFIZER INC-2020065627

PATIENT
  Sex: Male

DRUGS (1)
  1. MINIPRESS [Suspect]
     Active Substance: PRAZOSIN HYDROCHLORIDE
     Dosage: UNK

REACTIONS (3)
  - Dizziness [Unknown]
  - Drug interaction [Unknown]
  - Syncope [Unknown]
